FAERS Safety Report 23712992 (Version 1)
Quarter: 2024Q2

REPORT INFORMATION
  Report Type: Spontaneous
  Country: US (occurrence: None)
  Receive Date: 20240405
  Receipt Date: 20240405
  Transmission Date: 20240716
  Serious: Yes (Hospitalization)
  Sender: FDA-Public Use
  Company Number: None

PATIENT
  Sex: Female

DRUGS (3)
  1. GAMMAPLEX [Suspect]
     Active Substance: HUMAN IMMUNOGLOBULIN G
     Indication: Systemic lupus erythematosus
     Dosage: OTHER STRENGTH : 20GM/VL ?FREQUENCY : WEEKLY?
     Route: 042
     Dates: start: 202301
  2. GAMMAPLEX [Suspect]
     Active Substance: HUMAN IMMUNOGLOBULIN G
     Indication: Systemic lupus erythematosus
     Dosage: OTHER STRENGTH : 20GM/VL?FREQUENCY : WEEKLY?
     Route: 042
     Dates: start: 202301
  3. HEPARIN L/L FLUSH-SYRINGE [Concomitant]
     Dosage: FREQUENCY : WEEKLY;?
     Route: 042
     Dates: start: 202301

REACTIONS (4)
  - Infection [None]
  - Cholecystectomy [None]
  - Device dislocation [None]
  - Volvulus [None]
